FAERS Safety Report 24793993 (Version 1)
Quarter: 2024Q4

REPORT INFORMATION
  Report Type: Spontaneous
  Country: US (occurrence: US)
  Receive Date: 20241231
  Receipt Date: 20241231
  Transmission Date: 20250115
  Serious: Yes (Other)
  Sender: AMGEN
  Company Number: US-AMGEN-USASP2024253772

PATIENT
  Age: 54 Year
  Sex: Male

DRUGS (4)
  1. PREDNISONE [Suspect]
     Active Substance: PREDNISONE
     Indication: Immunosuppressant drug therapy
     Dosage: UNK
     Route: 065
  2. TACROLIMUS [Concomitant]
     Active Substance: TACROLIMUS
     Indication: Immunosuppressant drug therapy
  3. MYCOPHENOLATE MOFETIL [Concomitant]
     Active Substance: MYCOPHENOLATE MOFETIL
     Indication: Immunosuppressant drug therapy
  4. SULFAMETHOXAZOLE\TRIMETHOPRIM [Concomitant]
     Active Substance: SULFAMETHOXAZOLE\TRIMETHOPRIM

REACTIONS (4)
  - Oedematous kidney [Unknown]
  - Endocarditis [Unknown]
  - Cat scratch disease [Unknown]
  - Aortic valve thickening [Unknown]
